FAERS Safety Report 4868123-0 (Version None)
Quarter: 2005Q4

REPORT INFORMATION
  Report Type: 
  Country: None (occurrence: None)
  Receive Date: 20051227
  Receipt Date: 20051227
  Transmission Date: 20060501
  Serious: Yes (Death, Hospitalization)
  Sender: FDA-Public Use
  Company Number: None

PATIENT
  Sex: Female
  Weight: 37.72 kg

DRUGS (6)
  1. TAXOL [Suspect]
     Indication: CERVIX CARCINOMA
     Dosage: SEE IMAGE
     Dates: start: 20051201, end: 20051202
  2. TAXOL [Suspect]
     Indication: CERVIX CARCINOMA
     Dosage: SEE IMAGE
     Dates: start: 20051201
  3. CISPLATIN [Suspect]
     Dosage: SEE IMAGE
     Dates: start: 20051202
  4. COUMADIN [Concomitant]
  5. MEGACE [Concomitant]
  6. OXYCONTIN [Concomitant]

REACTIONS (6)
  - COUGH [None]
  - HEMIPARESIS [None]
  - INFREQUENT BOWEL MOVEMENTS [None]
  - ORAL INTAKE REDUCED [None]
  - PNEUMONIA [None]
  - URINE OUTPUT DECREASED [None]
